FAERS Safety Report 8138270-9 (Version None)
Quarter: 2012Q1

REPORT INFORMATION
  Report Type: 
  Country: None (occurrence: None)
  Receive Date: 20120215
  Receipt Date: 20120208
  Transmission Date: 20120608
  Serious: Yes (Hospitalization)
  Sender: FDA-Public Use
  Company Number: US-GENZYME-POMP-1002021

PATIENT
  Sex: Female
  Weight: 67.5 kg

DRUGS (1)
  1. LUMIZYME [Suspect]
     Indication: GLYCOGEN STORAGE DISEASE TYPE II
     Dosage: 1350 MG, Q2W
     Route: 042
     Dates: start: 20060101

REACTIONS (1)
  - THROMBOSIS [None]
